FAERS Safety Report 9369175 (Version 1)
Quarter: 2013Q2

REPORT INFORMATION
  Report Type: Spontaneous
  Country: US (occurrence: None)
  Receive Date: 20130625
  Receipt Date: 20130625
  Transmission Date: 20140414
  Serious: Yes (Death)
  Sender: FDA-Public Use
  Company Number: None

PATIENT
  Age: 65 Year
  Sex: Male
  Weight: 61.69 kg

DRUGS (2)
  1. XELJANZ 5MG BID PFIZER [Suspect]
     Indication: RHEUMATOID ARTHRITIS
     Route: 048
     Dates: start: 20130501
  2. ARAVA 20 MG BID [Suspect]
     Route: 048
     Dates: start: 20130329

REACTIONS (5)
  - Rash [None]
  - Asthenia [None]
  - Pneumonia [None]
  - Septic shock [None]
  - Respiratory failure [None]
